FAERS Safety Report 6672513-3 (Version None)
Quarter: 2010Q2

REPORT INFORMATION
  Report Type: 
  Country: None (occurrence: None)
  Receive Date: 20100407
  Receipt Date: 20100407
  Transmission Date: 20101027
  Serious: Yes (Hospitalization)
  Sender: FDA-Public Use
  Company Number: None

PATIENT
  Age: 60 Year
  Sex: Female
  Weight: 88.4514 kg

DRUGS (2)
  1. CIPROFLAXACIN [Suspect]
     Indication: BRONCHITIS
     Dosage: 500MG PO BID
     Route: 048
     Dates: start: 20100126, end: 20100201
  2. LEVAQUIN [Suspect]
     Indication: PNEUMONITIS
     Dosage: 250 G PO Q48 HR
     Route: 048
     Dates: start: 20100201, end: 20100204

REACTIONS (3)
  - BLOOD CREATININE INCREASED [None]
  - BLOOD UREA INCREASED [None]
  - PNEUMONITIS [None]
